FAERS Safety Report 6112544-5 (Version None)
Quarter: 2009Q1

REPORT INFORMATION
  Report Type: 
  Country: None (occurrence: None)
  Receive Date: 20090312
  Receipt Date: 20090227
  Transmission Date: 20090719
  Serious: Yes (Hospitalization)
  Sender: FDA-Public Use
  Company Number: JP-ELI_LILLY_AND_COMPANY-JP200903001140

PATIENT
  Sex: Female
  Weight: 60 kg

DRUGS (4)
  1. RALOXIFENE HYDROCHLORIDE [Suspect]
     Indication: OSTEOPOROSIS POSTMENOPAUSAL
     Dosage: 60 MG, DAILY (1/D)
     Route: 048
     Dates: start: 20080306, end: 20080724
  2. ONEALFA [Concomitant]
     Indication: OSTEOPOROSIS POSTMENOPAUSAL
     Route: 048
     Dates: start: 20080314, end: 20080724
  3. ACINON [Concomitant]
     Indication: PROPHYLAXIS
     Route: 048
     Dates: end: 20080724
  4. ALINAMIN F [Concomitant]
     Indication: PROPHYLAXIS
     Route: 065
     Dates: end: 20080724

REACTIONS (1)
  - NEOPLASM MALIGNANT [None]
